FAERS Safety Report 6904268-9 (Version None)
Quarter: 2010Q3

REPORT INFORMATION
  Report Type: 
  Country: None (occurrence: None)
  Receive Date: 20100804
  Receipt Date: 20090415
  Transmission Date: 20110219
  Serious: Yes (Disabling, Other)
  Sender: FDA-Public Use
  Company Number: US-PFIZER INC-2009182288

PATIENT
  Sex: Female
  Weight: 90.703 kg

DRUGS (1)
  1. LYRICA [Suspect]
     Indication: FIBROMYALGIA
     Dosage: 150 MG, 2X/DAY
     Route: 048
     Dates: start: 20090305, end: 20090308

REACTIONS (5)
  - DELIRIUM [None]
  - DIZZINESS [None]
  - GAIT DISTURBANCE [None]
  - MUSCLE SPASMS [None]
  - PYREXIA [None]
